FAERS Safety Report 10006436 (Version 1)
Quarter: 2014Q1

REPORT INFORMATION
  Report Type: Spontaneous
  Country: US (occurrence: None)
  Receive Date: 20140312
  Receipt Date: 20140312
  Transmission Date: 20141002
  Serious: Yes (Hospitalization, Disabling, Other)
  Sender: FDA-Public Use
  Company Number: None

PATIENT
  Age: 41 Year
  Sex: Male
  Weight: 149.69 kg

DRUGS (2)
  1. CLINDAMYCIN [Suspect]
     Indication: CELLULITIS
     Dates: start: 20110302, end: 20110308
  2. LEVAQUIN [Suspect]
     Dates: start: 20110308, end: 20110309

REACTIONS (3)
  - Stevens-Johnson syndrome [None]
  - Tremor [None]
  - Neuropathy peripheral [None]
